FAERS Safety Report 9543303 (Version 1)
Quarter: 2013Q2

REPORT INFORMATION
  Report Type: Spontaneous
  Country: US (occurrence: None)
  Receive Date: 20130524
  Receipt Date: 20130524
  Transmission Date: 20140414
  Serious: No
  Sender: FDA-Public Use
  Company Number: PHEH2013US002129

PATIENT
  Sex: Female

DRUGS (2)
  1. GILENYA [Suspect]
     Indication: MULTIPLE SCLEROSIS
     Route: 048
     Dates: start: 201210
  2. AMPYRA (FAMPRIDINE) TABLET, 10MG [Suspect]
     Dates: start: 201210

REACTIONS (4)
  - Fibromyalgia [None]
  - Musculoskeletal discomfort [None]
  - Asthenia [None]
  - Drug ineffective [None]
